FAERS Safety Report 8534315-2 (Version None)
Quarter: 2012Q3

REPORT INFORMATION
  Report Type: 
  Country: None (occurrence: None)
  Receive Date: 20120724
  Receipt Date: 20120713
  Transmission Date: 20120928
  Serious: Yes (Hospitalization)
  Sender: FDA-Public Use
  Company Number: JP-UCBSA-061414

PATIENT
  Age: 61 Year
  Sex: Female

DRUGS (12)
  1. REBAMIPIDE [Concomitant]
  2. METHOTREXATE [Suspect]
     Route: 048
     Dates: start: 20120101, end: 20120515
  3. MISOPROSTOL [Concomitant]
     Dates: start: 20111001
  4. LOXOPROFEN [Concomitant]
     Dosage: DAILY DOSE: QS PRN
     Dates: start: 20120316
  5. ATORVASTATIN CALCIUM [Concomitant]
     Dates: start: 20120316
  6. CIMZIA [Suspect]
     Indication: RHEUMATOID ARTHRITIS
     Route: 058
     Dates: end: 20120612
  7. CIMZIA [Suspect]
     Route: 058
     Dates: start: 20111227
  8. METHOTREXATE [Suspect]
     Indication: RHEUMATOID ARTHRITIS
     Route: 048
     Dates: end: 20120620
  9. METHOTREXATE [Suspect]
     Route: 048
     Dates: start: 20120515
  10. METHOTREXATE [Suspect]
     Route: 048
     Dates: start: 20111228, end: 20120101
  11. FOLIC ACID [Concomitant]
     Dates: start: 20111230, end: 20120622
  12. CELECOXIB [Concomitant]
     Dates: start: 20120207

REACTIONS (1)
  - INTERSTITIAL LUNG DISEASE [None]
